FAERS Safety Report 5905151-8 (Version None)
Quarter: 2008Q4

REPORT INFORMATION
  Report Type: 
  Country: None (occurrence: None)
  Receive Date: 20081001
  Receipt Date: 20080925
  Transmission Date: 20090506
  Serious: Yes (Death, Other)
  Sender: FDA-Public Use
  Company Number: PHHO2007TR11679

PATIENT
  Age: 31 Year
  Sex: Male

DRUGS (6)
  1. AMN107 [Suspect]
     Indication: LEUKAEMIA
     Dosage: 800MG DAILY
     Route: 048
     Dates: start: 20070524, end: 20070601
  2. AMN107 [Suspect]
     Dosage: NO TREATMENT
     Dates: start: 20070602, end: 20070612
  3. AMN107 [Suspect]
     Dosage: 800MG DAILY
     Route: 048
     Dates: start: 20070613, end: 20070624
  4. ETOPOSIDE [Suspect]
  5. CYTARABINE [Suspect]
  6. MITOXANTRONE [Suspect]

REACTIONS (2)
  - CARDIAC ARREST [None]
  - FEBRILE NEUTROPENIA [None]
